FAERS Safety Report 5757316-6 (Version None)
Quarter: 2008Q2

REPORT INFORMATION
  Report Type: 
  Country: None (occurrence: None)
  Receive Date: 20080603
  Receipt Date: 20080522
  Transmission Date: 20081010
  Serious: Yes (Other)
  Sender: FDA-Public Use
  Company Number: HK-ROCHE-566326

PATIENT
  Age: 42 Year
  Sex: Male

DRUGS (3)
  1. PEGASYS [Suspect]
     Route: 058
     Dates: start: 20080201
  2. TELBIVUDINE [Suspect]
     Route: 065
     Dates: start: 20071101
  3. ADEFOVIR DIPIVOXIL KIT [Suspect]
     Route: 065
     Dates: start: 20071101

REACTIONS (3)
  - NERVE DEGENERATION [None]
  - PARAESTHESIA [None]
  - PERIPHERAL SENSORY NEUROPATHY [None]
